FAERS Safety Report 4790944-3 (Version None)
Quarter: 2005Q4

REPORT INFORMATION
  Report Type: 
  Country: None (occurrence: None)
  Receive Date: 20051007
  Receipt Date: 20051004
  Transmission Date: 20060501
  Serious: Yes (Death)
  Sender: FDA-Public Use
  Company Number: US-SANOFI-SYNTHELABO-F01200502049

PATIENT
  Sex: Female
  Weight: 75 kg

DRUGS (12)
  1. OXALIPLATIN [Suspect]
     Indication: COLORECTAL CANCER METASTATIC
     Route: 042
     Dates: start: 20050921, end: 20050921
  2. FLUOROURACIL [Suspect]
     Indication: COLON CANCER METASTATIC
     Dosage: 2400 MG/M2 IV ON DAY 1 AND DAY 2, Q2W
     Route: 042
     Dates: start: 20050921, end: 20050923
  3. LEUCOVORIN [Suspect]
     Indication: COLON CANCER METASTATIC
     Route: 042
     Dates: start: 20050921, end: 20050921
  4. BEVACIZUMAB [Suspect]
     Indication: COLON CANCER METASTATIC
     Route: 042
     Dates: start: 20050921, end: 20050921
  5. CA/MG OR PLACEBO [Suspect]
     Route: 042
     Dates: start: 20050921, end: 20050921
  6. ZOSYN [Concomitant]
     Indication: SEPSIS
     Dates: start: 20051002, end: 20051003
  7. GENTAMICIN [Concomitant]
     Indication: SEPSIS
     Dates: start: 20051002, end: 20051003
  8. HYDROCHLOROTHIAZIDE [Concomitant]
  9. COMPAZINE [Concomitant]
  10. TOFRANIL [Concomitant]
  11. BENICAR [Concomitant]
  12. EMEND [Concomitant]

REACTIONS (1)
  - NEUTROPENIC SEPSIS [None]
